FAERS Safety Report 4957868-X (Version None)
Quarter: 2006Q1

REPORT INFORMATION
  Report Type: 
  Country: None (occurrence: None)
  Receive Date: 20060324
  Receipt Date: 20060315
  Transmission Date: 20060701
  Serious: Yes (Hospitalization)
  Sender: FDA-Public Use
  Company Number: 2006-03-0890

PATIENT
  Age: 66 Year
  Sex: Female

DRUGS (1)
  1. CELESDEPOT INJECTABLE SUSPENSION ^LIKE CELESTONE SOLUSPAN^ [Suspect]
     Dosage: INTRA-ART
     Route: 014
     Dates: start: 20030101

REACTIONS (4)
  - COUGH [None]
  - DYSPNOEA [None]
  - RHINORRHOEA [None]
  - STRIDOR [None]
